FAERS Safety Report 13744292 (Version 1)
Quarter: 2017Q3

REPORT INFORMATION
  Report Type: Spontaneous
  Country: US (occurrence: US)
  Receive Date: 20170712
  Receipt Date: 20170712
  Transmission Date: 20171127
  Serious: No
  Sender: FDA-Public Use
  Company Number: US-TRIS PHARMA, INC-2017TRISPO00195

PATIENT

DRUGS (2)
  1. HYDROCODONE + APAP [Suspect]
     Active Substance: ACETAMINOPHEN\HYDROCODONE BITARTRATE
     Indication: ARTHRITIS
     Dosage: 7.5/325 MG, 3 TIMES A DAY AS NEEDED/SOMETIMES 4 TO 5 TABLETS A DAY
     Route: 048
     Dates: start: 201705
  2. HYDROCODONE + APAP [Suspect]
     Active Substance: ACETAMINOPHEN\HYDROCODONE BITARTRATE
     Indication: BACK PAIN

REACTIONS (1)
  - Drug ineffective [Unknown]
